FAERS Safety Report 23164498 (Version 1)
Quarter: 2023Q4

REPORT INFORMATION
  Report Type: Spontaneous
  Country: US (occurrence: US)
  Receive Date: 20231109
  Receipt Date: 20231109
  Transmission Date: 20240109
  Serious: Yes (Other)
  Sender: FDA-Public Use
  Company Number: US-MYLANLABS-2023M1118114

PATIENT
  Age: 52 Year
  Sex: Male

DRUGS (5)
  1. TIMOLOL [Suspect]
     Active Substance: TIMOLOL
     Indication: Open angle glaucoma
     Dosage: UNK, BID, EYE DROPS
     Route: 061
  2. BRIMONIDINE TARTRATE\BRINZOLAMIDE [Suspect]
     Active Substance: BRIMONIDINE TARTRATE\BRINZOLAMIDE
     Indication: Open angle glaucoma
     Dosage: UNK, TID (EYE DROPS 3 TIMES A DAY)
     Route: 061
  3. BIMATOPROST [Suspect]
     Active Substance: BIMATOPROST
     Indication: Open angle glaucoma
     Dosage: UNK, HS (EYE DROPS EVERY NIGHT AT BEDTIME)
     Route: 061
  4. BROMFENAC [Suspect]
     Active Substance: BROMFENAC SODIUM
     Indication: Open angle glaucoma
     Dosage: UNK, QD (EYE DROPS)
     Route: 061
  5. FLUOROMETHOLONE [Concomitant]
     Active Substance: FLUOROMETHOLONE
     Indication: Eye disorder
     Dosage: UNK, BID (EYE DROPS)
     Route: 061

REACTIONS (1)
  - Drug ineffective [Unknown]
